FAERS Safety Report 10372282 (Version 2)
Quarter: 2014Q3

REPORT INFORMATION
  Report Type: Spontaneous
  Country: US (occurrence: US)
  Receive Date: 20140808
  Receipt Date: 20140808
  Transmission Date: 20150326
  Serious: Yes (Hospitalization)
  Sender: FDA-Public Use
  Company Number: US-BRISTOL-MYERS SQUIBB COMPANY-20777918

PATIENT
  Age: 76 Year
  Sex: Male
  Weight: 90.7 kg

DRUGS (5)
  1. SPRYCEL [Suspect]
     Active Substance: DASATINIB
     Indication: CHRONIC MYELOID LEUKAEMIA
     Dates: start: 20120611
  2. POTASSIUM [Concomitant]
     Active Substance: POTASSIUM
  3. METOPROLOL [Concomitant]
     Active Substance: METOPROLOL
  4. OMEPRAZOLE. [Concomitant]
     Active Substance: OMEPRAZOLE
  5. LASIX [Concomitant]
     Active Substance: FUROSEMIDE

REACTIONS (2)
  - Pleural effusion [Unknown]
  - Drug dose omission [Unknown]

NARRATIVE: CASE EVENT DATE: 20130513
